FAERS Safety Report 25680027 (Version 5)
Quarter: 2025Q4

REPORT INFORMATION
  Report Type: Report from Study
  Country: US (occurrence: US)
  Receive Date: 20250814
  Receipt Date: 20251113
  Transmission Date: 20260117
  Serious: Yes (Hospitalization, Other)
  Sender: ABBVIE
  Company Number: US-ABBVIE-6411862

PATIENT
  Age: 54 Year
  Sex: Female

DRUGS (3)
  1. SKYRIZI [Suspect]
     Active Substance: RISANKIZUMAB-RZAA
     Indication: Crohn^s disease
     Route: 058
     Dates: start: 2025
  2. SKYRIZI [Suspect]
     Active Substance: RISANKIZUMAB-RZAA
     Indication: Crohn^s disease
     Dosage: LAST ADMIN: 2025
     Route: 042
     Dates: start: 20250506
  3. PREGABALIN [Suspect]
     Active Substance: PREGABALIN
     Indication: Pain management
     Route: 065

REACTIONS (9)
  - Wound infection [Not Recovered/Not Resolved]
  - Malaise [Unknown]
  - Hypotension [Not Recovered/Not Resolved]
  - Abdominal hernia [Unknown]
  - Hernia [Recovering/Resolving]
  - Renal impairment [Recovering/Resolving]
  - Pain [Not Recovered/Not Resolved]
  - Blood pressure systolic abnormal [Unknown]
  - Amnesia [Unknown]

NARRATIVE: CASE EVENT DATE: 20250101
